FAERS Safety Report 8479800-7 (Version None)
Quarter: 2012Q2

REPORT INFORMATION
  Report Type: 
  Country: None (occurrence: None)
  Receive Date: 20120615
  Receipt Date: 20120606
  Transmission Date: 20120825
  Serious: Yes (Hospitalization, Other)
  Sender: FDA-Public Use
  Company Number: 2012SP030968

PATIENT
  Sex: Male

DRUGS (2)
  1. PEG-INTRON [Suspect]
     Indication: HEPATITIS C
     Dates: start: 20120505
  2. RIBAVIRIN [Suspect]
     Indication: HEPATITIS C
     Dates: start: 20120505

REACTIONS (4)
  - FALL [None]
  - CONVULSION [None]
  - CONFUSIONAL STATE [None]
  - HALLUCINATIONS, MIXED [None]
